FAERS Safety Report 9539056 (Version 5)
Quarter: 2013Q4

REPORT INFORMATION
  Report Type: Spontaneous
  Country: US (occurrence: US)
  Receive Date: 20130920
  Receipt Date: 20131017
  Transmission Date: 20140711
  Serious: Yes (Other)
  Sender: FDA-Public Use
  Company Number: US-JNJFOC-20130909236

PATIENT
  Age: 83 Year
  Sex: Female

DRUGS (2)
  1. XARELTO [Suspect]
     Indication: THROMBOSIS PROPHYLAXIS
     Route: 065
  2. XARELTO [Suspect]
     Indication: KNEE ARTHROPLASTY
     Route: 065

REACTIONS (2)
  - Gastrointestinal haemorrhage [Unknown]
  - Intercepted medication error [Unknown]
